FAERS Safety Report 10670699 (Version 1)
Quarter: 2014Q4

REPORT INFORMATION
  Report Type: Spontaneous
  Country: CA (occurrence: None)
  Receive Date: 20141219
  Receipt Date: 20141219
  Transmission Date: 20150529
  Serious: Yes (Life-Threatening, Disabling)
  Sender: FDA-Public Use
  Company Number: A1072503A

PATIENT
  Age: 48 Year
  Sex: Female

DRUGS (4)
  1. CLONAZEPAM. [Concomitant]
     Active Substance: CLONAZEPAM
  2. QUETIAPINE [Concomitant]
     Active Substance: QUETIAPINE
  3. PAROXETINE HYDROCHLORIDE TABLETS [Suspect]
     Active Substance: PAROXETINE HYDROCHLORIDE
     Indication: PRODUCT USED FOR UNKNOWN INDICATION
     Route: 048
  4. ESOMEPRAZOLE [Concomitant]
     Active Substance: ESOMEPRAZOLE

REACTIONS (8)
  - Amnesia [None]
  - Liver disorder [None]
  - Disturbance in attention [None]
  - Chest pain [None]
  - Constipation [None]
  - Dizziness [None]
  - Gastrointestinal disorder [None]
  - Mental impairment [None]
